FAERS Safety Report 16106476 (Version 2)
Quarter: 2019Q2

REPORT INFORMATION
  Report Type: Spontaneous
  Country: US (occurrence: US)
  Receive Date: 20190322
  Receipt Date: 20190424
  Transmission Date: 20190711
  Serious: Yes (Death)
  Sender: FDA-Public Use
  Company Number: US-MTPC-MTDA2019-0040134

PATIENT

DRUGS (2)
  1. RADICAVA [Suspect]
     Active Substance: EDARAVONE
     Indication: AMYOTROPHIC LATERAL SCLEROSIS
     Dosage: 60 MILLIGRAM OVER A 60 MINUTE PERIOD, QD FOR 14 DAYS FOLLOWED BY A 14-DAY DRUG FREE PERIOD
     Route: 042
  2. RADICAVA [Suspect]
     Active Substance: EDARAVONE
     Dosage: 60 MILLIGRAM, QD FOR 10 DAYS OUT OF 14-DAY PERIODS, FOLLOWED BY 14-DAY DRUG-FREE PERIODS
     Route: 042

REACTIONS (1)
  - Disease progression [Fatal]
